FAERS Safety Report 10612809 (Version 3)
Quarter: 2014Q4

REPORT INFORMATION
  Report Type: Report from Study
  Country: TR (occurrence: TR)
  Receive Date: 20141127
  Receipt Date: 20141219
  Transmission Date: 20150529
  Serious: Yes (Other)
  Sender: FDA-Public Use
  Company Number: PHHY2014TR102547

PATIENT
  Sex: Female
  Weight: 50 kg

DRUGS (2)
  1. EXJADE [Suspect]
     Active Substance: DEFERASIROX
     Dosage: 1500 MG, DAILY
     Route: 048
     Dates: start: 2008
  2. EXJADE [Suspect]
     Active Substance: DEFERASIROX
     Indication: THALASSAEMIA BETA
     Dosage: 1500 MG, DAILY
     Route: 048
     Dates: start: 2008

REACTIONS (3)
  - Hepatic enzyme increased [Not Recovered/Not Resolved]
  - Urinary tract infection [Recovered/Resolved]
  - Serum ferritin increased [Unknown]
